FAERS Safety Report 17593482 (Version 1)
Quarter: 2020Q1

REPORT INFORMATION
  Report Type: Spontaneous
  Country: US (occurrence: US)
  Receive Date: 20200327
  Receipt Date: 20200327
  Transmission Date: 20200409
  Serious: No
  Sender: FDA-Public Use
  Company Number: US-ADHERA THERAPEUTICS, INC.-2019ADHERA000577

PATIENT

DRUGS (1)
  1. PRESTALIA [Suspect]
     Active Substance: AMLODIPINE BESYLATE\PERINDOPRIL ARGININE
     Indication: PRODUCT USED FOR UNKNOWN INDICATION
     Dosage: UNK (7MG/5MG) TABLET, UNK

REACTIONS (1)
  - Vomiting [Recovered/Resolved]
